FAERS Safety Report 6857379-0 (Version None)
Quarter: 2010Q3

REPORT INFORMATION
  Report Type: 
  Country: None (occurrence: None)
  Receive Date: 20100719
  Receipt Date: 20100709
  Transmission Date: 20110219
  Serious: Yes (Other)
  Sender: FDA-Public Use
  Company Number: US-AMGEN-KDL423601

PATIENT
  Sex: Female

DRUGS (2)
  1. ENBREL [Suspect]
     Indication: RHEUMATOID ARTHRITIS
     Route: 058
     Dates: start: 20050922
  2. REMICADE [Concomitant]

REACTIONS (11)
  - ABDOMINAL DISCOMFORT [None]
  - ANAPHYLACTIC SHOCK [None]
  - ARTHRALGIA [None]
  - BLOOD PRESSURE DECREASED [None]
  - BODY TEMPERATURE DECREASED [None]
  - CHEST DISCOMFORT [None]
  - INFLAMMATION [None]
  - LABORATORY TEST ABNORMAL [None]
  - SWELLING [None]
  - THROAT TIGHTNESS [None]
  - URTICARIA [None]
